FAERS Safety Report 5502416-9 (Version None)
Quarter: 2007Q4

REPORT INFORMATION
  Report Type: 
  Country: None (occurrence: None)
  Receive Date: 20071030
  Receipt Date: 20071018
  Transmission Date: 20080405
  Serious: Yes (Death, Other)
  Sender: FDA-Public Use
  Company Number: FR-PFIZER INC-2007070589

PATIENT
  Sex: Male

DRUGS (8)
  1. LYRICA [Suspect]
     Indication: NEURALGIA
     Route: 048
  2. LYRICA [Suspect]
     Indication: PAIN
  3. MORPHINE SULFATE [Concomitant]
  4. BENZODIAZEPINE DERIVATIVES [Concomitant]
  5. ANTIDEPRESSANTS [Concomitant]
  6. OXYCODONE HCL [Concomitant]
     Route: 048
  7. CLONAZEPAM [Concomitant]
     Route: 048
  8. PREDNISOLONE [Concomitant]
     Route: 048

REACTIONS (4)
  - BRONCHIAL NEOPLASM [None]
  - EYELID OEDEMA [None]
  - FACE OEDEMA [None]
  - LACRIMATION INCREASED [None]
